FAERS Safety Report 5578218-4 (Version None)
Quarter: 2007Q4

REPORT INFORMATION
  Report Type: 
  Country: None (occurrence: None)
  Receive Date: 20071231
  Receipt Date: 20071220
  Transmission Date: 20080405
  Serious: Yes (Hospitalization, Other)
  Sender: FDA-Public Use
  Company Number: US-PFIZER INC-2007107089

PATIENT
  Sex: Female
  Weight: 57.272 kg

DRUGS (13)
  1. DIFLUCAN [Suspect]
     Indication: FUNGAL INFECTION
     Dates: start: 20071010, end: 20071101
  2. DRUG, UNSPECIFIED [Suspect]
     Indication: VAGINAL HAEMORRHAGE
  3. VALPROIC ACID [Concomitant]
  4. PROPRANOLOL [Concomitant]
  5. PERCOCET [Concomitant]
  6. IBANDRONATE SODIUM [Concomitant]
  7. DURAGESIC-100 [Concomitant]
  8. DILANTIN [Concomitant]
  9. PHENOBARBITAL TAB [Concomitant]
  10. LORAZEPAM [Concomitant]
  11. MUCINEX [Concomitant]
  12. SOMA [Concomitant]
  13. ACETYLSALICYLIC ACID SRT [Concomitant]

REACTIONS (11)
  - AMNESIA [None]
  - BURNING SENSATION [None]
  - DYSARTHRIA [None]
  - GAIT DISTURBANCE [None]
  - HYPERTENSION [None]
  - MIGRAINE [None]
  - MOVEMENT DISORDER [None]
  - TRANSIENT ISCHAEMIC ATTACK [None]
  - VAGINAL HAEMORRHAGE [None]
  - WEIGHT DECREASED [None]
  - WEIGHT INCREASED [None]
